FAERS Safety Report 24961168 (Version 2)
Quarter: 2025Q2

REPORT INFORMATION
  Report Type: Spontaneous
  Country: US (occurrence: US)
  Receive Date: 20250212
  Receipt Date: 20250418
  Transmission Date: 20250717
  Serious: No
  Sender: ROCHE
  Company Number: US-ROCHE-10000205628

PATIENT
  Age: 43 Year
  Sex: Female
  Weight: 64.2 kg

DRUGS (2)
  1. CELLCEPT [Suspect]
     Active Substance: MYCOPHENOLATE MOFETIL
     Indication: Lupus nephritis
     Route: 042
     Dates: start: 2019, end: 2019
  2. MYFORTIC [Concomitant]
     Active Substance: MYCOPHENOLATE SODIUM
     Dates: start: 2020

REACTIONS (3)
  - Off label use [Unknown]
  - Alopecia [Recovered/Resolved]
  - Candida infection [Recovered/Resolved]
